FAERS Safety Report 15494366 (Version 1)
Quarter: 2018Q4

REPORT INFORMATION
  Report Type: Spontaneous
  Country: US (occurrence: US)
  Receive Date: 20181012
  Receipt Date: 20181012
  Transmission Date: 20190205
  Serious: Yes (Other)
  Sender: FDA-Public Use
  Company Number: US-ELI_LILLY_AND_COMPANY-US201810001835

PATIENT
  Age: 55 Year
  Sex: Female

DRUGS (3)
  1. ALIMTA [Suspect]
     Active Substance: PEMETREXED DISODIUM
     Indication: NON-SMALL CELL LUNG CANCER
     Dosage: 880 MG, UNKNOWN
     Route: 065
     Dates: start: 20160428, end: 20161223
  2. AVASTIN [Concomitant]
     Active Substance: BEVACIZUMAB
     Indication: NON-SMALL CELL LUNG CANCER
     Dosage: UNK
     Dates: start: 20160428
  3. CARBOPLATIN. [Concomitant]
     Active Substance: CARBOPLATIN
     Indication: NON-SMALL CELL LUNG CANCER
     Dosage: UNK
     Dates: start: 20160428

REACTIONS (14)
  - Nausea [Unknown]
  - Dyspepsia [Unknown]
  - Malignant neoplasm progression [Unknown]
  - Weight increased [Unknown]
  - Constipation [Unknown]
  - Pollakiuria [Unknown]
  - Fatigue [Unknown]
  - Off label use [Unknown]
  - Increased tendency to bruise [Unknown]
  - Vomiting [Unknown]
  - Decreased appetite [Unknown]
  - Anaemia [Unknown]
  - Stomatitis [Unknown]
  - Thrombocytopenia [Unknown]

NARRATIVE: CASE EVENT DATE: 20160503
